FAERS Safety Report 12306586 (Version 4)
Quarter: 2017Q1

REPORT INFORMATION
  Report Type: Spontaneous
  Country: JP (occurrence: JP)
  Receive Date: 20160426
  Receipt Date: 20170321
  Transmission Date: 20170428
  Serious: Yes (Hospitalization)
  Sender: FDA-Public Use
  Company Number: PHJP2016JP010453

PATIENT
  Age: 65 Year
  Sex: Female

DRUGS (15)
  1. SELEGILINE [Concomitant]
     Active Substance: SELEGILINE
     Indication: PRODUCT USED FOR UNKNOWN INDICATION
     Dosage: 2.5 MG, QD
     Route: 065
     Dates: start: 201207, end: 201410
  2. LEVODOPA-CARBIDOPA [Suspect]
     Active Substance: CARBIDOPA\LEVODOPA
     Indication: PRODUCT USED FOR UNKNOWN INDICATION
     Dosage: 100 MG, TID (EVERY 5 HOURS )
     Route: 065
     Dates: start: 200908, end: 201311
  3. SELEGILINE [Concomitant]
     Active Substance: SELEGILINE
     Dosage: 2.5 MG, QD
     Route: 065
     Dates: start: 201501
  4. LEVODOPA-CARBIDOPA [Suspect]
     Active Substance: CARBIDOPA\LEVODOPA
     Dosage: 200 MG, TID
     Route: 065
     Dates: start: 201501, end: 201602
  5. LEVODOPA-CARBIDOPA [Suspect]
     Active Substance: CARBIDOPA\LEVODOPA
     Dosage: 150 MG, TID
     Route: 065
     Dates: start: 201409, end: 201501
  6. SELEGILINE [Concomitant]
     Active Substance: SELEGILINE
     Dosage: 2.5 MG, BID
     Route: 065
     Dates: start: 201410, end: 201501
  7. ROTIGOTINE [Concomitant]
     Active Substance: ROTIGOTINE
     Dosage: 13.5 MG, UNK
     Route: 065
  8. STALEVO [Suspect]
     Active Substance: CARBIDOPA\ENTACAPONE\LEVODOPA
     Indication: PARKINSON^S DISEASE
     Dosage: 600 MG, UNK
     Route: 048
     Dates: start: 20160303, end: 20160330
  9. ROTIGOTINE [Concomitant]
     Active Substance: ROTIGOTINE
     Dosage: 9 MG, UNK
     Route: 065
     Dates: end: 201506
  10. CABERGOLINE. [Concomitant]
     Active Substance: CABERGOLINE
     Indication: PRODUCT USED FOR UNKNOWN INDICATION
     Dosage: 1.25 MG, UNK
     Route: 065
     Dates: start: 201506
  11. ROPINIROLE. [Concomitant]
     Active Substance: ROPINIROLE
     Indication: PRODUCT USED FOR UNKNOWN INDICATION
     Dosage: 2.0 MG, UNK
     Route: 065
  12. COMTAN [Suspect]
     Active Substance: ENTACAPONE
     Indication: PARKINSON^S DISEASE
     Dosage: 100 MG, TID
     Route: 048
     Dates: start: 201107, end: 201507
  13. LEVODOPA-CARBIDOPA [Suspect]
     Active Substance: CARBIDOPA\LEVODOPA
     Dosage: 400 MG, UNK
     Route: 065
     Dates: start: 201311, end: 201409
  14. ROTIGOTINE [Concomitant]
     Active Substance: ROTIGOTINE
     Indication: PRODUCT USED FOR UNKNOWN INDICATION
     Dosage: 18 MG, UNK
     Route: 065
     Dates: start: 201504
  15. CABERGOLINE. [Concomitant]
     Active Substance: CABERGOLINE
     Dosage: 1.5 MG, UNK
     Route: 065
     Dates: end: 201511

REACTIONS (4)
  - Decreased appetite [Recovered/Resolved]
  - Nocturia [Recovered/Resolved]
  - Dyskinesia [Recovered/Resolved]
  - Nausea [Recovered/Resolved]
